FAERS Safety Report 8110176-0 (Version None)
Quarter: 2012Q1

REPORT INFORMATION
  Report Type: 
  Country: None (occurrence: None)
  Receive Date: 20120202
  Receipt Date: 20120125
  Transmission Date: 20120608
  Serious: No
  Sender: FDA-Public Use
  Company Number: US-AMGEN-USASP2012005225

PATIENT
  Age: 59 Year
  Sex: Female

DRUGS (1)
  1. ENBREL [Suspect]
     Indication: RHEUMATOID ARTHRITIS
     Dosage: 50 MG, QWK
     Dates: start: 20090722, end: 20120117

REACTIONS (10)
  - TINEA INFECTION [None]
  - THERAPEUTIC RESPONSE DECREASED [None]
  - OVERDOSE [None]
  - STEROID THERAPY [None]
  - INFLAMMATION [None]
  - EAR INFECTION [None]
  - BRONCHITIS [None]
  - PRURITUS GENITAL [None]
  - INFECTION [None]
  - SINUSITIS [None]
